FAERS Safety Report 13417771 (Version 2)
Quarter: 2017Q2

REPORT INFORMATION
  Report Type: Report from Study
  Country: US (occurrence: US)
  Receive Date: 20170407
  Receipt Date: 20170425
  Transmission Date: 20170830
  Serious: Yes (Hospitalization)
  Sender: FDA-Public Use
  Company Number: US-009507513-1703USA013876

PATIENT
  Age: 54 Year
  Sex: Male

DRUGS (1)
  1. ISENTRESS [Suspect]
     Active Substance: RALTEGRAVIR POTASSIUM
     Dosage: UNK
     Route: 048
     Dates: start: 2015

REACTIONS (4)
  - Adverse event [Unknown]
  - Catheter placement [Unknown]
  - Drug dose omission [Unknown]
  - Complication associated with device [Unknown]

NARRATIVE: CASE EVENT DATE: 201612
